FAERS Safety Report 6419430-1 (Version None)
Quarter: 2009Q4

REPORT INFORMATION
  Report Type: 
  Country: None (occurrence: None)
  Receive Date: 20091029
  Receipt Date: 20091019
  Transmission Date: 20100525
  Serious: Yes (Life-Threatening)
  Sender: FDA-Public Use
  Company Number: FR-JNJFOC-20091006217

PATIENT
  Age: 47 Year
  Sex: Female

DRUGS (6)
  1. REMICADE [Suspect]
     Indication: RHEUMATOID ARTHRITIS
     Route: 042
     Dates: start: 20071016, end: 20071127
  2. METHOTREXATE [Suspect]
     Indication: RHEUMATOID ARTHRITIS
  3. ARAVA [Suspect]
     Indication: RHEUMATOID ARTHRITIS
     Route: 048
  4. HUMIRA [Suspect]
     Route: 042
  5. HUMIRA [Suspect]
     Indication: RHEUMATOID ARTHRITIS
     Route: 042
  6. ORENCIA [Concomitant]
     Indication: RHEUMATOID ARTHRITIS

REACTIONS (5)
  - ALOPECIA [None]
  - CERVICAL DYSPLASIA [None]
  - DRUG INEFFECTIVE [None]
  - RASH [None]
  - TOOTH EXTRACTION [None]
